FAERS Safety Report 8129395 (Version 3)
Quarter: 2013Q1

REPORT INFORMATION
  Report Type: Report from Study
  Country: US (occurrence: US)
  Receive Date: 20110909
  Receipt Date: 20130129
  Transmission Date: 20140127
  Serious: Yes (Hospitalization)
  Sender: FDA-Public Use
  Company Number: US-JNJFOC-20110901982

PATIENT
  Age: 16 Year
  Sex: Female
  Weight: 53 kg

DRUGS (13)
  1. REMICADE [Suspect]
     Indication: INFLAMMATORY BOWEL DISEASE
     Route: 042
     Dates: start: 20110107, end: 20110215
  2. FOLIC ACID [Concomitant]
  3. FERROUS SULFATE [Concomitant]
  4. ALBUTEROL [Concomitant]
  5. ADVAIR [Concomitant]
  6. OMEPRAZOLE [Concomitant]
  7. PREDNISONE [Concomitant]
  8. ACETAMINOPHEN [Concomitant]
  9. OXYCODONE [Concomitant]
  10. MULTIVITAMINS [Concomitant]
  11. CALCIUM WITH VITAMIN D [Concomitant]
  12. ERGOCALCIFEROL [Concomitant]
  13. ANTIBIOTICS [Concomitant]

REACTIONS (1)
  - Post procedural infection [Recovered/Resolved]
